FAERS Safety Report 5068102-7 (Version None)
Quarter: 2006Q3

REPORT INFORMATION
  Report Type: 
  Country: None (occurrence: None)
  Receive Date: 20060731
  Receipt Date: 20060721
  Transmission Date: 20061208
  Serious: Yes (Other)
  Sender: FDA-Public Use
  Company Number: US-2006-020220

PATIENT
  Age: 35 Year
  Sex: Female
  Weight: 56 kg

DRUGS (1)
  1. YASMIN [Suspect]
     Indication: ENDOMETRIOSIS
     Dosage: 1 TAB(S), 1X/DAY
     Dates: start: 20060714, end: 20060719

REACTIONS (2)
  - BLINDNESS TRANSIENT [None]
  - HEADACHE [None]
